FAERS Safety Report 4913491-4 (Version None)
Quarter: 2006Q1

REPORT INFORMATION
  Report Type: 
  Country: None (occurrence: None)
  Receive Date: 20060216
  Receipt Date: 20051201
  Transmission Date: 20060701
  Serious: Yes (Life-Threatening, Other)
  Sender: FDA-Public Use
  Company Number: JP-SANOFI-SYNTHELABO-F01200502613

PATIENT
  Age: 71 Year
  Sex: Male
  Weight: 60 kg

DRUGS (10)
  1. OXALIPLATIN [Suspect]
     Dosage: 138.6MG/BODY=85MG/M2 IN INFUSION ON DAY 1
     Route: 042
     Dates: start: 20051003, end: 20051003
  2. OXALIPLATIN [Suspect]
     Dosage: 138.6MG/BODY=85MG/M2 IN INFUSION ON DAY 1
     Route: 042
     Dates: start: 20051017, end: 20051017
  3. OXALIPLATIN [Suspect]
     Dosage: 138.6MG/BODY=85MG/M2 IN INFUSION ON DAY 1
     Route: 042
     Dates: start: 20051117, end: 20051117
  4. FLUOROURACIL [Suspect]
     Indication: COLON CANCER
     Dosage: 652MG/BODY=400MG/M2 IN BOLUS THEN 978MG/BODY=600MG/M2 AS CONTINUOUS INFUSION ON DAYS 1 AND 2
     Route: 042
     Dates: start: 20051003, end: 20051004
  5. FLUOROURACIL [Suspect]
     Dosage: 652MG/BODY=400MG/M2 IN BOLUS THEN 978MG/BODY=600MG/M2 AS CONTINUOUS INFUSION ON DAYS 1 AND 2
     Route: 042
     Dates: start: 20051017, end: 20051018
  6. FLUOROURACIL [Suspect]
     Dosage: FLUOROURACIL 3912MG/BODY =2400MG/M2 IN CONTINUOUS INFUSION
     Route: 042
     Dates: start: 20051117, end: 20051117
  7. LEUCOVORIN CALCIUM [Suspect]
     Indication: COLON CANCER
     Dosage: 163MG/BODY=100MG/M2 AS INFUSION ON DAYS 1 AND 2
     Route: 042
     Dates: start: 20051003, end: 20051004
  8. LEUCOVORIN CALCIUM [Suspect]
     Dosage: 163MG/BODY=100MG/M2 AS INFUSION ON DAYS 1 AND 2
     Route: 042
     Dates: start: 20051017, end: 20051018
  9. LEUCOVORIN CALCIUM [Suspect]
     Dosage: 326MG/BODY=200MG/M2
     Route: 042
     Dates: start: 20051117, end: 20051117
  10. ISOTONIC SOLUTION [Concomitant]
     Route: 042
     Dates: start: 20051118, end: 20051118

REACTIONS (4)
  - ACIDOSIS [None]
  - DEPRESSED LEVEL OF CONSCIOUSNESS [None]
  - NAUSEA [None]
  - POLYURIA [None]
